FAERS Safety Report 18702070 (Version 1)
Quarter: 2021Q1

REPORT INFORMATION
  Report Type: Spontaneous
  Country: US (occurrence: US)
  Receive Date: 20210105
  Receipt Date: 20210105
  Transmission Date: 20210419
  Serious: Yes (Disabling, Other)
  Sender: FDA-Public Use
  Company Number: None

PATIENT
  Sex: Female
  Weight: 108.86 kg

DRUGS (2)
  1. MIRENA [Suspect]
     Active Substance: LEVONORGESTREL
     Dates: start: 20170620, end: 20200918
  2. ALBJUTEROL INHALER [Concomitant]

REACTIONS (2)
  - Complication of device removal [None]
  - Nervous system disorder [None]
